FAERS Safety Report 7852248-1 (Version None)
Quarter: 2011Q4

REPORT INFORMATION
  Report Type: 
  Country: None (occurrence: None)
  Receive Date: 20111026
  Receipt Date: 20111012
  Transmission Date: 20120403
  Serious: Yes (Hospitalization, Other)
  Sender: FDA-Public Use
  Company Number: US-ELI_LILLY_AND_COMPANY-US201107005832

PATIENT
  Sex: Female

DRUGS (12)
  1. FORTEO [Suspect]
     Indication: OSTEOPOROSIS
     Dosage: 20 UG, QD
     Route: 065
     Dates: start: 20080101
  2. XANAX [Concomitant]
  3. FORTEO [Suspect]
     Dosage: 20 UG, QD
     Route: 065
     Dates: start: 20110101
  4. INSULIN [Concomitant]
  5. ASPIRIN [Concomitant]
     Dosage: 81 MG, UNK
  6. VITAMIN D [Concomitant]
  7. ISOSORBIDE DINITRATE [Concomitant]
  8. FISH OIL [Concomitant]
  9. FORTEO [Suspect]
     Dosage: 20 UG, QD
     Route: 065
  10. FORTEO [Suspect]
     Dosage: 20 UG, QD
     Route: 065
     Dates: end: 20110901
  11. METOPROLOL TARTRATE [Concomitant]
  12. SYNTHROID [Concomitant]

REACTIONS (8)
  - MEMORY IMPAIRMENT [None]
  - HYPOTHYROIDISM [None]
  - PLEURITIC PAIN [None]
  - CARDIAC DISORDER [None]
  - INTENTIONAL DRUG MISUSE [None]
  - VASCULAR OCCLUSION [None]
  - PAIN IN EXTREMITY [None]
  - INJECTION SITE PAIN [None]
